FAERS Safety Report 10054968 (Version 2)
Quarter: 2014Q2

REPORT INFORMATION
  Report Type: Spontaneous
  Country: AU (occurrence: AU)
  Receive Date: 20140402
  Receipt Date: 20140410
  Transmission Date: 20141212
  Serious: Yes (Other)
  Sender: FDA-Public Use
  Company Number: ALCN2014AU002038

PATIENT
  Age: 70 Year
  Sex: Female

DRUGS (1)
  1. AZOPT [Suspect]
     Dosage: UNK
     Dates: start: 201402, end: 201402

REACTIONS (3)
  - Hydronephrosis [Recovering/Resolving]
  - Hydroureter [Recovering/Resolving]
  - Flank pain [Recovered/Resolved]
